FAERS Safety Report 5529552-5 (Version None)
Quarter: 2007Q4

REPORT INFORMATION
  Report Type: 
  Country: None (occurrence: None)
  Receive Date: 20071129
  Receipt Date: 20071115
  Transmission Date: 20080405
  Serious: Yes (Other)
  Sender: FDA-Public Use
  Company Number: BE-ELI_LILLY_AND_COMPANY-BE200711001587

PATIENT
  Age: 15 Year
  Sex: Male
  Weight: 60 kg

DRUGS (6)
  1. STRATTERA [Suspect]
     Indication: ATTENTION DEFICIT/HYPERACTIVITY DISORDER
     Dosage: UNK, UNKNOWN
     Route: 048
     Dates: start: 20070301, end: 20070101
  2. STRATTERA [Suspect]
     Dosage: 60 MG, DAILY (1/D)
     Route: 048
     Dates: start: 20070301, end: 20070101
  3. STRATTERA [Suspect]
     Dosage: 70 MG, DAILY (1/D)
     Route: 048
     Dates: start: 20070901, end: 20070101
  4. STRATTERA [Suspect]
     Dosage: 78 MG, DAILY (1/D)
     Route: 048
     Dates: start: 20070101, end: 20070101
  5. STRATTERA [Suspect]
     Dosage: 36 MG, DAILY (1/D)
     Route: 048
     Dates: start: 20071101
  6. ANTIMIGRAINE PREPARATIONS [Concomitant]
     Indication: MIGRAINE
     Dosage: UNK, UNKNOWN
     Route: 065

REACTIONS (7)
  - FATIGUE [None]
  - IRRITABILITY [None]
  - MIGRAINE [None]
  - MOOD ALTERED [None]
  - NAUSEA [None]
  - SUICIDAL IDEATION [None]
  - SUSPICIOUSNESS [None]
